FAERS Safety Report 14789995 (Version 1)
Quarter: 2018Q2

REPORT INFORMATION
  Report Type: Spontaneous
  Country: US (occurrence: US)
  Receive Date: 20180413
  Receipt Date: 20180413
  Transmission Date: 20180711
  Serious: Yes (Disabling, Other)
  Sender: FDA-Public Use
  Company Number: None

PATIENT
  Age: 55 Year
  Sex: Female
  Weight: 63 kg

DRUGS (7)
  1. RAINBOW LIGHT MULTIVITAMIN FOR WOMEN [Concomitant]
  2. PROBIOTICS [Concomitant]
     Active Substance: PROBIOTICS NOS
  3. GADAVIST [Suspect]
     Active Substance: GADOBUTROL
     Indication: NUCLEAR MAGNETIC RESONANCE IMAGING
     Dosage: ?          QUANTITY:6.5 MG;OTHER FREQUENCY:6/29/17 +  2/26/18;?INTRAVENOUS (NOT OTHERWISE SPECIFIED)
     Route: 042
     Dates: start: 20170629, end: 20180226
  4. NETTLES [Concomitant]
  5. CALCIUM AND MAGNESIUM [Concomitant]
     Active Substance: CALCIUM\MAGNESIUM
  6. EXTRA VITAMIN C [Concomitant]
  7. SIMETHICONE (DIMETHICONE) [Concomitant]
     Active Substance: DIMETHICONE

REACTIONS (14)
  - Alopecia [None]
  - Thirst [None]
  - Limb discomfort [None]
  - Chest discomfort [None]
  - Arthropathy [None]
  - Dysgeusia [None]
  - Sleep disorder [None]
  - Urticaria [None]
  - Cough [None]
  - Fatigue [None]
  - Nausea [None]
  - Muscular weakness [None]
  - Peripheral swelling [None]
  - Hyperhidrosis [None]

NARRATIVE: CASE EVENT DATE: 20180226
